FAERS Safety Report 20075207 (Version 2)
Quarter: 2022Q1

REPORT INFORMATION
  Report Type: Spontaneous
  Country: US (occurrence: US)
  Receive Date: 20211116
  Receipt Date: 20220119
  Transmission Date: 20220424
  Serious: Yes (Life-Threatening, Hospitalization)
  Sender: FDA-Public Use
  Company Number: US-SEPTODONT-2021006620

PATIENT
  Age: 65 Year
  Sex: Male

DRUGS (13)
  1. SEPTOCAINE [Suspect]
     Active Substance: ARTICAINE HYDROCHLORIDE\EPINEPHRINE BITARTRATE
     Dosage: 2 CARPULES
     Route: 004
     Dates: start: 20211102, end: 20211102
  2. DILTIAZEM [Concomitant]
     Active Substance: DILTIAZEM
  3. FENOFIBRATE [Concomitant]
     Active Substance: FENOFIBRATE
  4. GLIPIZIDE [Concomitant]
     Active Substance: GLIPIZIDE
  5. LISINOPRIL [Concomitant]
     Active Substance: LISINOPRIL
  6. METFORMIN [Concomitant]
     Active Substance: METFORMIN HYDROCHLORIDE
  7. MONTELUKAST [Concomitant]
     Active Substance: MONTELUKAST SODIUM
  8. OMEPRAZOLE [Concomitant]
     Active Substance: OMEPRAZOLE
  9. ROSUVASTATIN [Concomitant]
     Active Substance: ROSUVASTATIN
  10. SILDENAFIL [Concomitant]
     Active Substance: SILDENAFIL
  11. SITAGLIPTIN [Concomitant]
     Active Substance: SITAGLIPTIN
  12. UMECLIDINIUM [Concomitant]
     Active Substance: UMECLIDINIUM
  13. WARFARIN [Concomitant]
     Active Substance: WARFARIN

REACTIONS (5)
  - Blood pressure decreased [Recovered/Resolved]
  - Dizziness [Recovered/Resolved]
  - Pallor [Recovered/Resolved]
  - Nausea [Recovered/Resolved]
  - Dysarthria [Recovered/Resolved]

NARRATIVE: CASE EVENT DATE: 20211102
